FAERS Safety Report 25970188 (Version 1)
Quarter: 2025Q4

REPORT INFORMATION
  Report Type: Report from Study
  Country: US (occurrence: US)
  Receive Date: 20251028
  Receipt Date: 20251028
  Transmission Date: 20260117
  Serious: Yes (Hospitalization, Other)
  Sender: TAKEDA
  Company Number: US-TAKEDA-2025TUS092482

PATIENT
  Sex: Female

DRUGS (1)
  1. BRIGATINIB [Suspect]
     Active Substance: BRIGATINIB
     Indication: Lung neoplasm malignant
     Dosage: 180 MILLIGRAM, QD
     Dates: start: 202501

REACTIONS (7)
  - Oesophageal stenosis [Unknown]
  - Adrenal insufficiency [Unknown]
  - Chest pain [Recovered/Resolved]
  - Gene mutation [Unknown]
  - Cardiac murmur [Unknown]
  - Wrong technique in product usage process [Unknown]
  - Vomiting [Unknown]
